FAERS Safety Report 6868797-9 (Version None)
Quarter: 2010Q3

REPORT INFORMATION
  Report Type: 
  Country: None (occurrence: None)
  Receive Date: 20100722
  Receipt Date: 20080616
  Transmission Date: 20110219
  Serious: No
  Sender: FDA-Public Use
  Company Number: US-PFIZER INC-2008048977

PATIENT
  Sex: Female
  Weight: 73.94 kg

DRUGS (4)
  1. CHANTIX [Suspect]
     Indication: SMOKING CESSATION THERAPY
     Dates: start: 20080609
  2. NEXIUM [Concomitant]
  3. CELEBREX [Concomitant]
  4. CYMBALTA [Concomitant]

REACTIONS (4)
  - COUGH [None]
  - FATIGUE [None]
  - HOT FLUSH [None]
  - NASOPHARYNGITIS [None]
